FAERS Safety Report 10908636 (Version 1)
Quarter: 2015Q1

REPORT INFORMATION
  Report Type: Spontaneous
  Country: AU (occurrence: AU)
  Receive Date: 20150312
  Receipt Date: 20150312
  Transmission Date: 20150721
  Serious: Yes (Other)
  Sender: FDA-Public Use
  Company Number: AU-JNJFOC-20150302210

PATIENT
  Sex: Male

DRUGS (1)
  1. RISPERDAL CONSTA [Suspect]
     Active Substance: RISPERIDONE
     Indication: PRODUCT USED FOR UNKNOWN INDICATION
     Route: 030

REACTIONS (16)
  - Suicidal ideation [Unknown]
  - Agitation [Unknown]
  - Somnolence [Unknown]
  - Feeding disorder [Unknown]
  - Sexual dysfunction [Unknown]
  - Brain injury [Unknown]
  - Mental status changes [Unknown]
  - Mental disorder [Unknown]
  - Excessive eye blinking [Unknown]
  - Anxiety [Unknown]
  - Emotional distress [Unknown]
  - Autonomic nervous system imbalance [Unknown]
  - Social avoidant behaviour [Unknown]
  - Hypertonia [Unknown]
  - Respiratory distress [Unknown]
  - Nightmare [Unknown]
